FAERS Safety Report 8139913-6 (Version None)
Quarter: 2012Q1

REPORT INFORMATION
  Report Type: 
  Country: None (occurrence: None)
  Receive Date: 20120215
  Receipt Date: 20120209
  Transmission Date: 20120608
  Serious: Yes (Death)
  Sender: FDA-Public Use
  Company Number: US-CELGENEUS-163-21880-12021070

PATIENT
  Sex: Male
  Weight: 88.076 kg

DRUGS (13)
  1. EFFEXOR XR [Concomitant]
     Dosage: 37.5 MILLIGRAM
     Route: 065
  2. DILAUDID [Concomitant]
     Dosage: 4 MILLIGRAM
     Route: 065
  3. POTASSIUM CHLORIDE [Concomitant]
     Route: 065
  4. REVLIMID [Suspect]
     Dosage: 5 MILLIGRAM
     Route: 048
     Dates: start: 20120127
  5. VALTREX [Concomitant]
     Dosage: 500 MILLIGRAM
     Route: 065
  6. SPIRONOLACTONE [Concomitant]
     Dosage: 25 MILLIGRAM
     Route: 065
  7. REGLAN [Concomitant]
     Dosage: 5 MILLIGRAM
     Route: 065
  8. METOLAZONE [Concomitant]
     Dosage: 2.5 MILLIGRAM
     Route: 065
  9. VYTORIN [Concomitant]
     Dosage: 10-20MG
     Route: 065
  10. FUROSEMIDE [Concomitant]
     Dosage: 20 MILLIGRAM
     Route: 065
  11. PROMETHAZINE [Concomitant]
     Dosage: 25 MILLIGRAM
     Route: 065
  12. PREVACID [Concomitant]
     Dosage: 30 MILLIGRAM
     Route: 065
  13. DIGOXIN [Concomitant]
     Dosage: 125MCG
     Route: 065

REACTIONS (1)
  - DEATH [None]
